FAERS Safety Report 5036727-0 (Version None)
Quarter: 2006Q2

REPORT INFORMATION
  Report Type: 
  Country: None (occurrence: None)
  Receive Date: 20060616
  Receipt Date: 20060306
  Transmission Date: 20061013
  Serious: No
  Sender: FDA-Public Use
  Company Number: 2006RL000071

PATIENT
  Age: 64 Year
  Sex: Female
  Weight: 90.7194 kg

DRUGS (8)
  1. OMACOR [Suspect]
     Indication: PROPHYLAXIS
     Dosage: 2 GM; QD; PO
     Route: 048
     Dates: start: 20060201
  2. ADVAIR DISKUS 100/50 [Concomitant]
  3. SINGULAIR [Concomitant]
  4. LISINOPRIL [Concomitant]
  5. HYDROCHLOROTHIAZIDE [Concomitant]
  6. VYTORIN [Concomitant]
  7. ASPIRIN [Concomitant]
  8. BUSPIRONE HCL [Concomitant]

REACTIONS (3)
  - DYSPHAGIA [None]
  - LYMPHADENOPATHY [None]
  - PHARYNGOLARYNGEAL PAIN [None]
